FAERS Safety Report 4862635-1 (Version None)
Quarter: 2005Q4

REPORT INFORMATION
  Report Type: 
  Country: None (occurrence: None)
  Receive Date: 20051219
  Receipt Date: 20051219
  Transmission Date: 20060501
  Serious: Yes (Life-Threatening)
  Sender: FDA-Public Use
  Company Number: None

PATIENT
  Age: 39 Year
  Sex: Male

DRUGS (2)
  1. FUROSEMIDE [Suspect]
     Indication: OEDEMA
     Dosage: 140MG  DAILY   PO
     Route: 048
     Dates: start: 20050918, end: 20050926
  2. METOLAZONE [Suspect]
     Indication: OEDEMA
     Dosage: 10MG  DAILY  PO
     Route: 048
     Dates: start: 20050918, end: 20050926

REACTIONS (3)
  - BLOOD POTASSIUM DECREASED [None]
  - DYSPNOEA [None]
  - HYPOXIA [None]
